FAERS Safety Report 7626167-X (Version None)
Quarter: 2011Q3

REPORT INFORMATION
  Report Type: 
  Country: None (occurrence: None)
  Receive Date: 20110721
  Receipt Date: 20110712
  Transmission Date: 20111222
  Serious: Yes (Hospitalization)
  Sender: FDA-Public Use
  Company Number: BE-SANOFI-AVENTIS-2011SA044626

PATIENT
  Age: 72 Year
  Sex: Female
  Weight: 62.3 kg

DRUGS (7)
  1. BLINDED THERAPY [Suspect]
     Route: 065
     Dates: start: 20091021, end: 20091021
  2. MEDROL [Concomitant]
     Dates: start: 20091020, end: 20091022
  3. LITICAN [Concomitant]
     Dates: start: 20091021, end: 20091029
  4. ENOXAPARIN SODIUM [Concomitant]
     Dates: start: 20091022, end: 20091030
  5. XANAX [Concomitant]
     Dates: start: 20090101
  6. CEFTAZIDIME [Concomitant]
     Dates: start: 20091028, end: 20091103
  7. DOCETAXEL [Suspect]
     Route: 041
     Dates: start: 20091021, end: 20091021

REACTIONS (5)
  - FEBRILE NEUTROPENIA [None]
  - FACIAL BONES FRACTURE [None]
  - FALL [None]
  - LOSS OF CONSCIOUSNESS [None]
  - STOMATITIS [None]
